FAERS Safety Report 9419905 (Version 1)
Quarter: 2013Q3

REPORT INFORMATION
  Report Type: Spontaneous
  Country: US (occurrence: None)
  Receive Date: 20130723
  Receipt Date: 20130723
  Transmission Date: 20140515
  Serious: Yes (Hospitalization)
  Sender: FDA-Public Use
  Company Number: None

PATIENT
  Age: 66 Year
  Sex: Male

DRUGS (7)
  1. CARVEDILOL [Suspect]
     Indication: HYPERTENSION
     Route: 048
  2. LISINOPRIL 10 MG [Suspect]
     Indication: HYPERTENSION
     Route: 048
  3. ALBUTEROL [Concomitant]
  4. ASA [Concomitant]
  5. LIPITOR [Concomitant]
  6. CILOSTAZOL [Concomitant]
  7. ADVAIR DISKUS [Concomitant]

REACTIONS (1)
  - Hypotension [None]
